FAERS Safety Report 7006746-3 (Version None)
Quarter: 2010Q3

REPORT INFORMATION
  Report Type: 
  Country: None (occurrence: None)
  Receive Date: 20100922
  Receipt Date: 20100914
  Transmission Date: 20110219
  Serious: Yes (Hospitalization)
  Sender: FDA-Public Use
  Company Number: US-BIOGENIDEC-2010BI010185

PATIENT
  Age: 49 Year
  Sex: Female
  Weight: 112 kg

DRUGS (2)
  1. TYSABRI [Suspect]
     Indication: MULTIPLE SCLEROSIS
     Route: 042
     Dates: start: 20080301
  2. AMANTADINE [Concomitant]
     Dates: end: 20100101

REACTIONS (3)
  - MULTIPLE SCLEROSIS RELAPSE [None]
  - RASH ERYTHEMATOUS [None]
  - TYPE 2 DIABETES MELLITUS [None]
